FAERS Safety Report 12683485 (Version 1)
Quarter: 2016Q3

REPORT INFORMATION
  Report Type: Spontaneous
  Country: ES (occurrence: ES)
  Receive Date: 20160825
  Receipt Date: 20160825
  Transmission Date: 20161109
  Serious: Yes (Death, Other)
  Sender: FDA-Public Use
  Company Number: PHHY2016ES115220

PATIENT
  Age: 60 Year
  Sex: Male

DRUGS (8)
  1. CICLOSPORIN [Suspect]
     Active Substance: CYCLOSPORINE
     Indication: IMMUNOSUPPRESSANT DRUG THERAPY
  2. MYCOPHENOLATE MOFETIL. [Concomitant]
     Active Substance: MYCOPHENOLATE MOFETIL
     Indication: IMMUNOSUPPRESSANT DRUG THERAPY
  3. CICLOSPORIN [Suspect]
     Active Substance: CYCLOSPORINE
     Indication: PROPHYLAXIS AGAINST GRAFT VERSUS HOST DISEASE
  4. CICLOSPORIN [Suspect]
     Active Substance: CYCLOSPORINE
     Indication: STEM CELL TRANSPLANT
     Dosage: 3 MG/KG, QD
     Route: 065
  5. METHOTREXATE. [Suspect]
     Active Substance: METHOTREXATE
     Indication: STEM CELL TRANSPLANT
     Route: 065
  6. METHOTREXATE. [Suspect]
     Active Substance: METHOTREXATE
     Indication: PROPHYLAXIS AGAINST GRAFT VERSUS HOST DISEASE
  7. MYCOPHENOLATE MOFETIL. [Concomitant]
     Active Substance: MYCOPHENOLATE MOFETIL
     Indication: STEM CELL TRANSPLANT
     Dosage: 1 G, Q8H
     Route: 065
  8. IMATINIB [Suspect]
     Active Substance: IMATINIB
     Indication: CHRONIC GRAFT VERSUS HOST DISEASE
     Dosage: 100 MG, QD
     Route: 065

REACTIONS (6)
  - Chronic graft versus host disease in skin [Unknown]
  - Therapeutic response decreased [Fatal]
  - Graft versus host disease in lung [Unknown]
  - Graft versus host disease in gastrointestinal tract [Unknown]
  - Off label use [Unknown]
  - Graft versus host disease in eye [Unknown]
